FAERS Safety Report 10640276 (Version 1)
Quarter: 2014Q4

REPORT INFORMATION
  Report Type: Report from Study
  Country: CN (occurrence: CN)
  Receive Date: 20141209
  Receipt Date: 20141209
  Transmission Date: 20150529
  Serious: Yes (Other)
  Sender: FDA-Public Use
  Company Number: CN-PFIZER INC-2014329926

PATIENT
  Age: 17 Year
  Sex: Female

DRUGS (7)
  1. IBUPROFEN. [Suspect]
     Active Substance: IBUPROFEN
     Dosage: 0.3 G X 5 PILLS, UNK
  2. MEROPENEM. [Concomitant]
     Active Substance: MEROPENEM
     Dosage: UNK
  3. NORFLOXACIN BACCIDAL [Concomitant]
     Dosage: UNK
  4. RIFAMPICIN [Concomitant]
     Active Substance: RIFAMPIN
     Dosage: UNK
  5. INDOMETHACIN. [Suspect]
     Active Substance: INDOMETHACIN
     Dosage: 75 MG X 10 PILLS, INTERMITTENT FOR 1 MO
  6. CEFOPERAZONE [Concomitant]
     Active Substance: CEFOPERAZONE
     Dosage: UNK
  7. DIFLUCAN [Concomitant]
     Active Substance: FLUCONAZOLE
     Dosage: UNK

REACTIONS (3)
  - Hepatitis cholestatic [Unknown]
  - Nephropathy toxic [Unknown]
  - Hepatotoxicity [Unknown]
